FAERS Safety Report 6607106-7 (Version None)
Quarter: 2010Q1

REPORT INFORMATION
  Report Type: 
  Country: None (occurrence: None)
  Receive Date: 20100219
  Receipt Date: 20100205
  Transmission Date: 20100710
  Serious: Yes (Hospitalization)
  Sender: FDA-Public Use
  Company Number: ABCAD-10-0056

PATIENT
  Age: 60 Year
  Sex: Female

DRUGS (5)
  1. ABRAXANE [Suspect]
     Indication: METASTATIC MALIGNANT MELANOMA
     Dosage: (200 MG/M2 EVERY 21 DAYS), INTRAVENOUS
     Route: 042
     Dates: start: 20091021
  2. CARBOPLATIN [Suspect]
     Indication: METASTATIC MALIGNANT MELANOMA
     Dosage: (AUC 6 EVERY 21 DAYS), INTRAVENOUS
     Route: 042
     Dates: start: 20091021
  3. SYNTHROID [Concomitant]
  4. ESTRADIOL [Concomitant]
  5. ALPHA LIPOIC ACID (THIOCOTIC ACID) [Concomitant]

REACTIONS (6)
  - BLOOD SODIUM DECREASED [None]
  - HAEMATOCRIT DECREASED [None]
  - HAEMOGLOBIN DECREASED [None]
  - HERPES SIMPLEX [None]
  - HERPES ZOSTER [None]
  - PLATELET COUNT DECREASED [None]
